FAERS Safety Report 17144834 (Version 2)
Quarter: 2020Q4

REPORT INFORMATION
  Report Type: Spontaneous
  Country: US (occurrence: US)
  Receive Date: 20191212
  Receipt Date: 20201203
  Transmission Date: 20210113
  Serious: No
  Sender: FDA-Public Use
  Company Number: US-NOVEN PHARMACEUTICALS, INC.-US2019000477

PATIENT

DRUGS (3)
  1. MINIVELLE [Suspect]
     Active Substance: ESTRADIOL
     Indication: OSTEOPOROSIS
     Dosage: 0.05 MG, UNKNOWN
     Route: 062
     Dates: start: 201810
  2. MINIVELLE [Suspect]
     Active Substance: ESTRADIOL
     Indication: BLOOD OESTROGEN DECREASED
     Dosage: 0.075 UNK, UNK
     Route: 062
     Dates: end: 20200217
  3. MINIVELLE [Suspect]
     Active Substance: ESTRADIOL
     Indication: OFF LABEL USE

REACTIONS (8)
  - Product adhesion issue [Unknown]
  - Application site rash [Unknown]
  - Breast tenderness [Recovered/Resolved]
  - Application site pruritus [Unknown]
  - Exposure via direct contact [Recovered/Resolved]
  - Postmenopausal haemorrhage [Recovered/Resolved]
  - Off label use [Not Recovered/Not Resolved]
  - Uterine enlargement [Unknown]

NARRATIVE: CASE EVENT DATE: 201810
